FAERS Safety Report 13609428 (Version 2)
Quarter: 2017Q2

REPORT INFORMATION
  Report Type: Spontaneous
  Country: US (occurrence: US)
  Receive Date: 20170602
  Receipt Date: 20170605
  Transmission Date: 20170830
  Serious: No
  Sender: FDA-Public Use
  Company Number: US-PFIZER INC-2953010

PATIENT
  Age: 61 Year
  Sex: Female
  Weight: 92.72 kg

DRUGS (7)
  1. RELPAX [Concomitant]
     Active Substance: ELETRIPTAN HYDROBROMIDE
     Indication: MIGRAINE
     Dosage: 40 MG, 1 AT ONSET AND REPEAT IN 20 MINUTES
     Route: 048
  2. LEVOTHYROXINE. [Concomitant]
     Active Substance: LEVOTHYROXINE
     Indication: THYROID DISORDER
     Dosage: 150 MG, FREQ: 1 DAY; INTERVAL: 1
     Route: 048
  3. FENTANYL. [Concomitant]
     Active Substance: FENTANYL
     Indication: FIBROMYALGIA
     Dosage: 75 UG, PATCH, FREQ: 48 HOUR; INTERVAL: 1
     Route: 061
  4. KETOROLAC TROMETHAMINE. [Suspect]
     Active Substance: KETOROLAC TROMETHAMINE
     Dosage: 60 MG, UNK
     Route: 030
     Dates: start: 20150610
  5. GABAPENTIN. [Concomitant]
     Active Substance: GABAPENTIN
     Indication: NEURALGIA
     Dosage: 600 MG, FREQ: 3 DAY; INTERVAL: 1
     Route: 048
  6. KETOROLAC TROMETHAMINE. [Suspect]
     Active Substance: KETOROLAC TROMETHAMINE
     Indication: PROCEDURAL PAIN
     Dosage: 60 MG,
     Route: 030
     Dates: start: 20150608
  7. NORCO [Concomitant]
     Active Substance: ACETAMINOPHEN\HYDROCODONE BITARTRATE
     Indication: ARTHRITIS
     Dosage: 5-325 MG, FREQ: 2 DAY; INTERVAL: 1
     Route: 048

REACTIONS (7)
  - Urticaria [Recovered/Resolved]
  - Injection site pain [Unknown]
  - Dyspnoea [Not Recovered/Not Resolved]
  - Administration site bruise [Not Recovered/Not Resolved]
  - Product quality issue [Unknown]
  - Chest pain [Not Recovered/Not Resolved]
  - Injection site mass [Not Recovered/Not Resolved]

NARRATIVE: CASE EVENT DATE: 2015
